FAERS Safety Report 6388212-1 (Version None)
Quarter: 2009Q3

REPORT INFORMATION
  Report Type: 
  Country: None (occurrence: None)
  Receive Date: 20090930
  Receipt Date: 20090924
  Transmission Date: 20100115
  Serious: Yes (Other)
  Sender: FDA-Public Use
  Company Number: GXKR2009DE10586

PATIENT
  Sex: Male

DRUGS (1)
  1. PENHEXAL (NGX) (PHENOXYMETHYLPENICILLIN (=PENICILLIN V)) FILM-COATED, [Suspect]
     Indication: TONSILLITIS
     Dosage: 1 DF, TID, ORAL
     Route: 048
     Dates: start: 20090813, end: 20090823

REACTIONS (4)
  - AGEUSIA [None]
  - DECREASED APPETITE [None]
  - FACIAL PARESIS [None]
  - WEIGHT DECREASED [None]
